FAERS Safety Report 10501118 (Version 1)
Quarter: 2014Q4

REPORT INFORMATION
  Report Type: Spontaneous
  Country: US (occurrence: None)
  Receive Date: 20141006
  Receipt Date: 20141006
  Transmission Date: 20150528
  Serious: Yes (Other)
  Sender: FDA-Public Use
  Company Number: None

PATIENT
  Age: 35 Year
  Sex: Female
  Weight: 49.9 kg

DRUGS (2)
  1. MULTI VITAMIN TABLET [Concomitant]
  2. CIPROFLOXACIN. [Suspect]
     Active Substance: CIPROFLOXACIN
     Indication: URINARY TRACT INFECTION
     Route: 048
     Dates: start: 20140725, end: 20140730

REACTIONS (9)
  - Confusional state [None]
  - Rash [None]
  - Thirst [None]
  - Heart rate irregular [None]
  - Pruritus [None]
  - Tendon pain [None]
  - Myalgia [None]
  - Tendonitis [None]
  - Blood pressure abnormal [None]

NARRATIVE: CASE EVENT DATE: 20140727
